FAERS Safety Report 25480588 (Version 1)
Quarter: 2025Q2

REPORT INFORMATION
  Report Type: Spontaneous
  Country: US (occurrence: US)
  Receive Date: 20250625
  Receipt Date: 20250625
  Transmission Date: 20250717
  Serious: No
  Sender: BANNER
  Company Number: BANN2400305

PATIENT

DRUGS (2)
  1. BAFIERTAM [Suspect]
     Active Substance: MONOMETHYL FUMARATE
     Indication: Multiple sclerosis
     Dosage: 95 MILLIGRAM, BID
     Route: 065
     Dates: start: 20241101, end: 20241115
  2. BAFIERTAM [Suspect]
     Active Substance: MONOMETHYL FUMARATE
     Dosage: 190 MILLIGRAM, BID
     Route: 065
     Dates: start: 20241116

REACTIONS (2)
  - Flushing [Recovered/Resolved]
  - Abdominal discomfort [Recovered/Resolved]

NARRATIVE: CASE EVENT DATE: 20241104
